FAERS Safety Report 7626298-4 (Version None)
Quarter: 2011Q3

REPORT INFORMATION
  Report Type: 
  Country: None (occurrence: None)
  Receive Date: 20110721
  Receipt Date: 20110711
  Transmission Date: 20111222
  Serious: Yes (Hospitalization)
  Sender: FDA-Public Use
  Company Number: US-JNJFOC-20110104466

PATIENT
  Sex: Female
  Weight: 45.81 kg

DRUGS (4)
  1. FOLIC ACID [Concomitant]
     Indication: RHEUMATOID ARTHRITIS
     Route: 065
  2. REMICADE [Suspect]
     Indication: RHEUMATOID ARTHRITIS
     Dosage: 3-10MG/KG
     Route: 042
     Dates: start: 20050101, end: 20100714
  3. OTHER THERAPEUTIC MEDICATIONS [Concomitant]
     Dates: end: 20100101
  4. METHOTREXATE [Concomitant]
     Indication: RHEUMATOID ARTHRITIS
     Dosage: WEEKLY
     Route: 048
     Dates: end: 20100101

REACTIONS (3)
  - ABNORMAL LOSS OF WEIGHT [None]
  - MENTAL STATUS CHANGES [None]
  - DEMENTIA [None]
